FAERS Safety Report 4962630-8 (Version None)
Quarter: 2006Q2

REPORT INFORMATION
  Report Type: 
  Country: None (occurrence: None)
  Receive Date: 20060404
  Receipt Date: 20060327
  Transmission Date: 20061013
  Serious: Yes (Other)
  Sender: FDA-Public Use
  Company Number: JP-ABBOTT-06P-087-0329098-00

PATIENT
  Sex: Male

DRUGS (11)
  1. SEVOFLURANE [Suspect]
     Indication: GENERAL ANAESTHESIA
     Route: 055
     Dates: start: 20060307, end: 20060307
  2. SEVOFLURANE [Suspect]
     Route: 055
     Dates: start: 20060221, end: 20060221
  3. SUCCIN TABLETS [Suspect]
     Indication: INDUCTION OF ANAESTHESIA
     Dates: start: 20060307, end: 20060307
  4. SUCCIN TABLETS [Suspect]
     Dates: start: 20060221, end: 20060221
  5. PROPOFOL [Suspect]
     Indication: INDUCTION OF ANAESTHESIA
     Dates: start: 20060307, end: 20060307
  6. NITROUS OXIDE W/ OXYGEN [Concomitant]
     Indication: MAINTENANCE OF ANAESTHESIA
     Route: 055
     Dates: start: 20060307, end: 20060307
  7. NITROUS OXIDE W/ OXYGEN [Concomitant]
     Route: 055
     Dates: start: 20060221, end: 20060221
  8. METHYLPREDNISOLONE SODIUM SUCCINATE [Concomitant]
     Indication: SHOCK
     Dates: start: 20060307, end: 20060307
  9. ATROPINE SULFATE [Concomitant]
     Indication: ANAESTHETIC PREMEDICATION
     Route: 030
     Dates: start: 20060307, end: 20060307
  10. THALAMONAL [Concomitant]
     Indication: GENERAL ANAESTHESIA
     Dates: start: 20060221, end: 20060221
  11. THIAMYLAL SODIUM [Concomitant]
     Indication: GENERAL ANAESTHESIA
     Dates: start: 20060221, end: 20060221

REACTIONS (2)
  - ANAPHYLACTIC SHOCK [None]
  - HYPOTENSION [None]
